FAERS Safety Report 8557210-1 (Version None)
Quarter: 2012Q3

REPORT INFORMATION
  Report Type: 
  Country: None (occurrence: None)
  Receive Date: 20120801
  Receipt Date: 20120727
  Transmission Date: 20120928
  Serious: Yes (Death, Other)
  Sender: FDA-Public Use
  Company Number: PHHO2006JP00821

PATIENT
  Sex: Male

DRUGS (10)
  1. MAGMITT [Concomitant]
     Indication: CONSTIPATION
     Dosage: 1500 MG, UNK
     Route: 048
     Dates: start: 20050511, end: 20050630
  2. PURSENNID [Concomitant]
     Indication: CONSTIPATION
     Dosage: 12 MG, UNK
     Route: 048
     Dates: start: 20050701, end: 20050810
  3. ZOLEDRONOC ACID [Suspect]
     Indication: HYPERCALCAEMIA OF MALIGNANCY
     Dosage: 4 MG, PER ADMINISTRATION
     Route: 041
     Dates: start: 20050511, end: 20050511
  4. ZOLEDRONOC ACID [Suspect]
     Dosage: 4 MG, PER ADMINISTRATION
     Route: 041
     Dates: start: 20050615, end: 20050615
  5. ZOLEDRONOC ACID [Suspect]
     Dosage: 4 MG, PER ADMINISTRATION
     Route: 041
     Dates: start: 20050805, end: 20050805
  6. FAMOTIDINE [Concomitant]
     Indication: GASTRITIS
     Dosage: 20 MG, UNK
     Route: 048
     Dates: start: 20050511, end: 20050630
  7. FENTANYL-100 [Concomitant]
     Indication: PAIN
     Dosage: 2.5 MG, TID
     Dates: start: 20050511, end: 20050810
  8. ZOLEDRONOC ACID [Suspect]
     Dosage: 4 MG, PER ADMINISTRATION
     Route: 041
     Dates: start: 20050702, end: 20050702
  9. ALLOPURINOL [Concomitant]
     Indication: HYPERURICAEMIA
     Dosage: 100 MG, UNK
     Route: 048
     Dates: start: 20050615, end: 20050630
  10. LASIX [Concomitant]
     Indication: PLEURAL EFFUSION
     Dosage: 10 MG, UNK
     Route: 048
     Dates: start: 20050608, end: 20050705

REACTIONS (4)
  - PLEURAL EFFUSION [None]
  - NEOPLASM MALIGNANT [None]
  - HYPERURICAEMIA [None]
  - NEOPLASM PROGRESSION [None]
